FAERS Safety Report 13853636 (Version 1)
Quarter: 2017Q3

REPORT INFORMATION
  Report Type: Spontaneous
  Country: US (occurrence: US)
  Receive Date: 20170810
  Receipt Date: 20170810
  Transmission Date: 20171127
  Serious: Yes (Other)
  Sender: FDA-Public Use
  Company Number: US-BRISTOL-MYERS SQUIBB COMPANY-BMS-2017-069697

PATIENT
  Sex: Female
  Weight: 58.96 kg

DRUGS (1)
  1. ELIQUIS [Suspect]
     Active Substance: APIXABAN
     Indication: GASTROINTESTINAL DISORDER
     Dosage: 2.5 MG, BID
     Route: 048
     Dates: start: 2016

REACTIONS (4)
  - Decreased appetite [Unknown]
  - Product use in unapproved indication [Unknown]
  - Arterial occlusive disease [Unknown]
  - Contusion [Unknown]
